FAERS Safety Report 5030694-1 (Version None)
Quarter: 2006Q2

REPORT INFORMATION
  Report Type: 
  Country: None (occurrence: None)
  Receive Date: 20060615
  Receipt Date: 20060606
  Transmission Date: 20061013
  Serious: Yes (Hospitalization)
  Sender: FDA-Public Use
  Company Number: 2006072677

PATIENT
  Age: 61 Year
  Sex: Male

DRUGS (2)
  1. FRAGMIN [Suspect]
     Indication: DEEP VEIN THROMBOSIS
     Dosage: 30000 I.U. (15000 I.U., 2 IN 1 D), SUBCUTANEOUS
     Route: 058
  2. WARFARIN SODIUM [Suspect]
     Indication: DEEP VEIN THROMBOSIS

REACTIONS (11)
  - ANEURYSM RUPTURED [None]
  - ARTHRALGIA [None]
  - BACTERIAL INFECTION [None]
  - BLOOD PRESSURE INCREASED [None]
  - BODY TEMPERATURE INCREASED [None]
  - C-REACTIVE PROTEIN INCREASED [None]
  - ERYSIPELAS [None]
  - HAEMOGLOBIN DECREASED [None]
  - JOINT SWELLING [None]
  - PERIPHERAL ARTERY ANEURYSM [None]
  - STAPHYLOCOCCAL INFECTION [None]
